FAERS Safety Report 6705786-9 (Version None)
Quarter: 2010Q2

REPORT INFORMATION
  Report Type: 
  Country: None (occurrence: None)
  Receive Date: 20100503
  Receipt Date: 20091113
  Transmission Date: 20101027
  Serious: Yes (Other)
  Sender: FDA-Public Use
  Company Number: CA-BAYER-200932116NA

PATIENT
  Age: 47 Year
  Sex: Female
  Weight: 70 kg

DRUGS (3)
  1. MIRENA [Suspect]
     Indication: DRUG USE FOR UNKNOWN INDICATION
     Dosage: CONTINUOUS
     Route: 015
  2. MULTI-VITAMINS [Concomitant]
  3. ACETAMINOPHEN [Concomitant]

REACTIONS (11)
  - ABDOMINAL DISTENSION [None]
  - ANXIETY [None]
  - BREAST DISCOMFORT [None]
  - BREAST NEOPLASM [None]
  - DISCOMFORT [None]
  - DRY SKIN [None]
  - OTITIS MEDIA [None]
  - SENSITIVITY OF TEETH [None]
  - SKIN ODOUR ABNORMAL [None]
  - VAGINAL DISCHARGE [None]
  - VAGINAL HAEMORRHAGE [None]
